FAERS Safety Report 7377546-X (Version None)
Quarter: 2011Q1

REPORT INFORMATION
  Report Type: 
  Country: None (occurrence: None)
  Receive Date: 20110328
  Receipt Date: 20110318
  Transmission Date: 20110831
  Serious: Yes (Other)
  Sender: FDA-Public Use
  Company Number: FR-SANOFI-AVENTIS-2011SA016378

PATIENT
  Age: 63 Year
  Sex: Male

DRUGS (4)
  1. PREVISCAN [Concomitant]
     Route: 048
     Dates: start: 20101001
  2. CARDENSIEL [Concomitant]
     Route: 048
     Dates: start: 20101001
  3. MULTAQ [Suspect]
     Route: 048
     Dates: start: 20101030, end: 20110131
  4. CORDARONE [Suspect]
     Route: 048
     Dates: start: 20110201, end: 20110304

REACTIONS (2)
  - TRANSAMINASES INCREASED [None]
  - MIXED LIVER INJURY [None]
